FAERS Safety Report 22058324 (Version 1)
Quarter: 2023Q1

REPORT INFORMATION
  Report Type: Spontaneous
  Country: GB (occurrence: GB)
  Receive Date: 20230303
  Receipt Date: 20230303
  Transmission Date: 20230418
  Serious: Yes (Hospitalization)
  Sender: FDA-Public Use
  Company Number: None

PATIENT
  Sex: Female

DRUGS (18)
  1. FUROSEMIDE [Suspect]
     Active Substance: FUROSEMIDE
     Indication: Product used for unknown indication
     Dosage: 40 MG TABLETS BD
  2. CANDESARTAN [Suspect]
     Active Substance: CANDESARTAN
     Indication: Product used for unknown indication
     Dosage: 4 MG OM
  3. IBUPROFEN [Suspect]
     Active Substance: IBUPROFEN
     Indication: Product used for unknown indication
     Dosage: 200 MG TDS
  4. BISOPROLOL [Concomitant]
     Active Substance: BISOPROLOL
     Dosage: 2.5 MG OM
  5. CODEINE [Concomitant]
     Active Substance: CODEINE
     Dosage: 15 MG TABLETS 1-2 QDS PRN
  6. MIRABEGRON [Concomitant]
     Active Substance: MIRABEGRON
     Dosage: 50 MG
  7. ACETAMINOPHEN [Concomitant]
     Active Substance: ACETAMINOPHEN
     Dosage: 500 MG TABLETS 2 QDS PRN
  8. PREGABALIN [Concomitant]
     Active Substance: PREGABALIN
     Dosage: 50 MG CAPSULES BD
  9. ROSUVASTATIN [Concomitant]
     Active Substance: ROSUVASTATIN
     Dosage: ONE TO BE TAKEN EACH DAY
  10. NITROGLYCERIN [Concomitant]
     Active Substance: NITROGLYCERIN
     Dosage: 400 MCG/DOSE PUMP SUBLINGUAL?SPRAY SPRAY 1-2 SPRAYS PRN
  11. ALENDRONIC ACID [Concomitant]
     Active Substance: ALENDRONIC ACID
     Dosage: ONCE A WEEK - MONDAY
  12. FERROUS FUMARATE [Concomitant]
     Active Substance: FERROUS FUMARATE
     Dosage: ONE TO BE TAKEN THREE TIMES A DAY
  13. FLEXITOL [Concomitant]
     Dosage: 25% UREA HEEL BALM, USE AS DIRECTED
  14. POLYETHYLENE GLYCOL 3350\POTASSIUM CHLORIDE\SODIUM BICARBONATE\SODIUM [Concomitant]
     Active Substance: POLYETHYLENE GLYCOL 3350\POTASSIUM CHLORIDE\SODIUM BICARBONATE\SODIUM CHLORIDE
     Dosage: ORANGE ORAL POWDER SACHETS 1-2 SACHETS ON PRN
  15. PEPPERMINT OIL [Concomitant]
     Active Substance: PEPPERMINT OIL
     Dosage: 5-10ML QDS PRN
  16. PROSHIELD PLUS [Concomitant]
     Dosage: SKIN PROTECTIVE AS DIRECTED
  17. SENNA [Concomitant]
     Active Substance: SENNA LEAF\SENNOSIDES\SENNOSIDES A AND B
     Dosage: 2 ON PRN
  18. CANDESARTAN [Suspect]
     Active Substance: CANDESARTAN
     Indication: Product used for unknown indication
     Dosage: 8 MG OM

REACTIONS (2)
  - Acute kidney injury [Recovered/Resolved]
  - Hyponatraemia [Recovered/Resolved]

NARRATIVE: CASE EVENT DATE: 20230106
